FAERS Safety Report 7831102-5 (Version None)
Quarter: 2011Q4

REPORT INFORMATION
  Report Type: 
  Country: None (occurrence: None)
  Receive Date: 20111021
  Receipt Date: 20111014
  Transmission Date: 20120403
  Serious: Yes (Other)
  Sender: FDA-Public Use
  Company Number: PT-BAXTER-2011BH032761

PATIENT
  Age: 58 Year
  Sex: Female

DRUGS (2)
  1. CYCLOPHOSPHAMIDE [Suspect]
     Indication: BREAST CANCER
     Dosage: FOI UTILIZADA UMA AMPOLA DE 1000 MG E UMA AMPOLA DE 500 MG, PARA UMA DOSE DE 1170 MG.
     Route: 042
     Dates: start: 20111006, end: 20111001
  2. CYCLOPHOSPHAMIDE [Suspect]
     Dosage: FOI UTILIZADA UMA AMPOLA DE 1000 MG E UMA AMPOLA DE 500 MG, PARA UMA DOSE DE 1170 MG.
     Route: 042
     Dates: start: 20111006, end: 20111001

REACTIONS (4)
  - MALAISE [None]
  - TACHYCARDIA [None]
  - CHEST DISCOMFORT [None]
  - DYSPNOEA [None]
